FAERS Safety Report 9932974 (Version 1)
Quarter: 2014Q1

REPORT INFORMATION
  Report Type: Spontaneous
  Country: US (occurrence: US)
  Receive Date: 20140228
  Receipt Date: 20140228
  Transmission Date: 20141002
  Serious: No
  Sender: FDA-Public Use
  Company Number: US-GLAXOSMITHKLINE-A1042550A

PATIENT
  Age: 46 Year
  Sex: Male

DRUGS (2)
  1. LAMICTAL [Suspect]
     Indication: AFFECTIVE DISORDER
     Dosage: 2TAB PER DAY
     Route: 048
     Dates: start: 2008
  2. LEXAPRO [Concomitant]

REACTIONS (5)
  - Drug ineffective [Recovered/Resolved]
  - Anger [Unknown]
  - Irritability [Unknown]
  - Anxiety [Unknown]
  - Product quality issue [Unknown]
